FAERS Safety Report 13772601 (Version 1)
Quarter: 2017Q3

REPORT INFORMATION
  Report Type: Spontaneous
  Country: FR (occurrence: FR)
  Receive Date: 20170720
  Receipt Date: 20170720
  Transmission Date: 20171127
  Serious: Yes (Death)
  Sender: FDA-Public Use
  Company Number: FR-JNJFOC-20170714844

PATIENT
  Age: 84 Year
  Sex: Male

DRUGS (1)
  1. XARELTO [Suspect]
     Active Substance: RIVAROXABAN
     Indication: ATRIAL FIBRILLATION
     Dosage: 15MG TABLET
     Route: 048
     Dates: end: 20170620

REACTIONS (2)
  - Cerebral haemorrhage [Fatal]
  - Primary headache associated with sexual activity [Fatal]

NARRATIVE: CASE EVENT DATE: 20170620
